FAERS Safety Report 6399011-9 (Version None)
Quarter: 2009Q4

REPORT INFORMATION
  Report Type: 
  Country: None (occurrence: None)
  Receive Date: 20091008
  Receipt Date: 20091008
  Transmission Date: 20100525
  Serious: No
  Sender: FDA-Public Use
  Company Number: None

PATIENT
  Sex: Female
  Weight: 10.8 kg

DRUGS (10)
  1. ONCASPAR [Suspect]
     Dosage: 650 IU
  2. VINCRISTINE SULFATE [Suspect]
     Dosage: 1.4 MG
  3. CYTARABINE [Suspect]
     Dosage: 30 MG
  4. DEXAMETHASONE 0.5MG TAB [Suspect]
     Dosage: 39 MG
  5. METHOTREXATE [Suspect]
     Dosage: 8 MG
  6. BENADRYL [Concomitant]
  7. FLUCONAZOLE [Concomitant]
  8. MINERAL OIL [Concomitant]
  9. ONDANSETRON [Concomitant]
  10. RANITIDINE [Concomitant]

REACTIONS (10)
  - ABDOMINAL DISTENSION [None]
  - ABDOMINAL PAIN [None]
  - BACILLUS INFECTION [None]
  - BLOOD CULTURE POSITIVE [None]
  - CONSTIPATION [None]
  - DISSEMINATED INTRAVASCULAR COAGULATION [None]
  - HYPOTENSION [None]
  - PANCREATITIS [None]
  - SEPSIS [None]
  - VOMITING [None]
